FAERS Safety Report 6723425-8 (Version None)
Quarter: 2010Q2

REPORT INFORMATION
  Report Type: 
  Country: None (occurrence: None)
  Receive Date: 20100511
  Receipt Date: 20100430
  Transmission Date: 20101027
  Serious: Yes (Other)
  Sender: FDA-Public Use
  Company Number: 1000013738

PATIENT
  Age: 85 Year
  Sex: Female

DRUGS (3)
  1. ESCITALOPRAM [Suspect]
     Dosage: 10 MG (10 MG, 1 IN 1 D), ORAL; 15 MG, 1 IN 1 D, ORAL
     Route: 048
  2. OMEPRAZOLE [Concomitant]
  3. AGGRENOX (TABLETS) [Concomitant]

REACTIONS (1)
  - NEUTROPENIA [None]
